FAERS Safety Report 17155108 (Version 2)
Quarter: 2020Q1

REPORT INFORMATION
  Report Type: Spontaneous
  Country: DE (occurrence: DE)
  Receive Date: 20191214
  Receipt Date: 20200116
  Transmission Date: 20200409
  Serious: Yes (Death, Other)
  Sender: FDA-Public Use
  Company Number: NVSC2019DE061978

PATIENT
  Age: 72 Year

DRUGS (2)
  1. VARGATEF [Suspect]
     Active Substance: NINTEDANIB
     Indication: PRODUCT USED FOR UNKNOWN INDICATION
     Dosage: UNK
     Route: 065
     Dates: start: 201810, end: 201901
  2. DOCETAXEL. [Suspect]
     Active Substance: DOCETAXEL
     Indication: PRODUCT USED FOR UNKNOWN INDICATION
     Dosage: UNK
     Route: 065
     Dates: end: 201810

REACTIONS (4)
  - Death [Fatal]
  - Polyneuropathy [Unknown]
  - Diarrhoea [Unknown]
  - Disease progression [Unknown]

NARRATIVE: CASE EVENT DATE: 20190110
